FAERS Safety Report 9886830 (Version 2)
Quarter: 2015Q3

REPORT INFORMATION
  Report Type: Spontaneous
  Country: CH (occurrence: CH)
  Receive Date: 20140210
  Receipt Date: 20150731
  Transmission Date: 20151125
  Serious: No
  Sender: FDA-Public Use
  Company Number: CH-RB-063148-14

PATIENT
  Age: 24 Year
  Sex: Female

DRUGS (2)
  1. TEMESTA                            /00273201/ [Suspect]
     Active Substance: LORAZEPAM
     Indication: ENDOMETRIOSIS
     Dosage: 2.5 MG, BID
     Route: 065
     Dates: start: 20131010, end: 201401
  2. BUPRENORPHINE HYDROCHLORIDE. [Suspect]
     Active Substance: BUPRENORPHINE HYDROCHLORIDE
     Indication: ENDOMETRIOSIS
     Dosage: 0.8 MG, BID
     Route: 065
     Dates: start: 20131010, end: 201401

REACTIONS (1)
  - Maternal exposure during pregnancy [Recovered/Resolved]

NARRATIVE: CASE EVENT DATE: 20131010
